FAERS Safety Report 24689636 (Version 1)
Quarter: 2024Q4

REPORT INFORMATION
  Report Type: Spontaneous
  Country: IR (occurrence: IR)
  Receive Date: 20241203
  Receipt Date: 20241203
  Transmission Date: 20250114
  Serious: Yes (Hospitalization)
  Sender: RISING PHARMACEUTICALS
  Company Number: IR-RISINGPHARMA-IR-2024RISLIT00464

PATIENT
  Age: 32 Year
  Sex: Male

DRUGS (1)
  1. CYPROHEPTADINE HYDROCHLORIDE [Suspect]
     Active Substance: CYPROHEPTADINE HYDROCHLORIDE
     Indication: Product use in unapproved indication
     Route: 048

REACTIONS (5)
  - Agitation [Recovered/Resolved]
  - Disorientation [Recovered/Resolved]
  - Blood creatine phosphokinase increased [Recovered/Resolved]
  - Toxicity to various agents [Recovered/Resolved]
  - Product use in unapproved indication [Unknown]
